FAERS Safety Report 5019278-9 (Version None)
Quarter: 2006Q2

REPORT INFORMATION
  Report Type: 
  Country: None (occurrence: None)
  Receive Date: 20060606
  Receipt Date: 20060428
  Transmission Date: 20061013
  Serious: Yes (Hospitalization)
  Sender: FDA-Public Use
  Company Number: JP-BRACCO-BRO-010062

PATIENT
  Sex: Female
  Weight: 46.3 kg

DRUGS (5)
  1. IOPAMIRON [Suspect]
     Route: 042
     Dates: start: 20060426, end: 20060426
  2. IOPAMIRON [Suspect]
     Route: 042
     Dates: start: 20060426, end: 20060426
  3. LIPOVAS                            /00848101/ [Concomitant]
     Route: 050
  4. RENIVACE [Concomitant]
     Route: 050
  5. BASEN [Concomitant]
     Route: 050

REACTIONS (5)
  - DIARRHOEA [None]
  - ENTEROCOLITIS [None]
  - FEELING HOT [None]
  - HOT FLUSH [None]
  - PYREXIA [None]
